FAERS Safety Report 8623214-3 (Version None)
Quarter: 2012Q3

REPORT INFORMATION
  Report Type: 
  Country: None (occurrence: None)
  Receive Date: 20120827
  Receipt Date: 20120817
  Transmission Date: 20120928
  Serious: No
  Sender: FDA-Public Use
  Company Number: US-BAYER-2012-085519

PATIENT
  Age: 82 Year
  Sex: Male
  Weight: 80.726 kg

DRUGS (16)
  1. OMEPRAZOLE [Concomitant]
  2. LEVOTHYROXINE SODIUM [Concomitant]
  3. CARVEDILOL [Concomitant]
  4. VITAMIN D [Concomitant]
  5. OCUTABS (GENERIC OF OCUVITE) [Concomitant]
  6. POTASSIUM [Concomitant]
  7. SPIRONOLACTONE [Concomitant]
  8. PACERONE [Concomitant]
  9. NITROFURANT MACRO [Concomitant]
  10. LOSARTAN POTASSIUM [Concomitant]
  11. PENTOXIFYLLINE [Concomitant]
  12. ALLOPURINOL [Concomitant]
  13. NITROGLYCERIN [Concomitant]
  14. ALEVE (CAPLET) [Suspect]
     Indication: ANALGESIC THERAPY
     Dosage: 2 DF, BID
     Route: 048
     Dates: start: 20120801
  15. AMLODIPINE [Concomitant]
  16. TRADOXA [Concomitant]

REACTIONS (1)
  - NIPPLE PAIN [None]
